FAERS Safety Report 22353310 (Version 1)
Quarter: 2023Q2

REPORT INFORMATION
  Report Type: Other
  Country: CN (occurrence: None)
  Receive Date: 20230523
  Receipt Date: 20230523
  Transmission Date: 20230722
  Serious: Yes (Death, Other)
  Sender: FDA-Public Use
  Company Number: CN-ROCHE-3353318

PATIENT

DRUGS (5)
  1. RITUXIMAB [Suspect]
     Active Substance: RITUXIMAB
     Indication: Diffuse large B-cell lymphoma refractory
     Route: 042
  2. DEXAMETHASONE [Suspect]
     Active Substance: DEXAMETHASONE
     Indication: Diffuse large B-cell lymphoma refractory
     Route: 065
  3. CYTARABINE [Suspect]
     Active Substance: CYTARABINE
     Indication: Diffuse large B-cell lymphoma refractory
     Route: 065
  4. CISPLATIN [Suspect]
     Active Substance: CISPLATIN
     Indication: Diffuse large B-cell lymphoma refractory
     Route: 065
  5. DECITABINE [Suspect]
     Active Substance: DECITABINE
     Indication: Diffuse large B-cell lymphoma refractory
     Route: 065

REACTIONS (13)
  - Infection [Fatal]
  - Pneumonia [Unknown]
  - Leukopenia [Unknown]
  - Mucosal inflammation [Unknown]
  - Anaemia [Unknown]
  - Alanine aminotransferase increased [Unknown]
  - Aspartate aminotransferase increased [Unknown]
  - Renal failure [Unknown]
  - Hypoaesthesia [Unknown]
  - Diarrhoea [Unknown]
  - Nausea [Unknown]
  - Constipation [Unknown]
  - Insomnia [Unknown]
